FAERS Safety Report 8597765-4 (Version None)
Quarter: 2012Q3

REPORT INFORMATION
  Report Type: 
  Country: None (occurrence: None)
  Receive Date: 20120816
  Receipt Date: 20120813
  Transmission Date: 20120928
  Serious: Yes (Hospitalization, Other)
  Sender: FDA-Public Use
  Company Number: PHHY2011CA27489

PATIENT
  Sex: Male

DRUGS (4)
  1. SANDOSTATIN LAR [Suspect]
     Dosage: 30 MG, EVERY 3 WEEKS
     Route: 030
  2. SANDOSTATIN [Suspect]
     Route: 058
  3. SUTENT [Concomitant]
  4. SANDOSTATIN LAR [Suspect]
     Indication: NEUROENDOCRINE TUMOUR
     Dosage: 20 MG, ONCE IN A MONTH
     Route: 030
     Dates: start: 20110228

REACTIONS (31)
  - ABDOMINAL PAIN [None]
  - ABDOMINAL MASS [None]
  - HEART RATE DECREASED [None]
  - BLOOD BILIRUBIN INCREASED [None]
  - PLEURAL EFFUSION [None]
  - COUGH [None]
  - CONSTIPATION [None]
  - DEHYDRATION [None]
  - URINE COLOUR ABNORMAL [None]
  - CONFUSIONAL STATE [None]
  - PAIN IN EXTREMITY [None]
  - DECREASED APPETITE [None]
  - BILE DUCT OBSTRUCTION [None]
  - AGITATION [None]
  - URINARY INCONTINENCE [None]
  - WEIGHT DECREASED [None]
  - ASCITES [None]
  - LOSS OF CONSCIOUSNESS [None]
  - FATIGUE [None]
  - RESTLESSNESS [None]
  - JAUNDICE [None]
  - JOINT SWELLING [None]
  - MICTURITION DISORDER [None]
  - SYNCOPE [None]
  - DYSPNOEA [None]
  - DISCOMFORT [None]
  - CARDIAC FAILURE CONGESTIVE [None]
  - LETHARGY [None]
  - BLOOD PRESSURE INCREASED [None]
  - ASTHENIA [None]
  - MALAISE [None]
